FAERS Safety Report 20206915 (Version 1)
Quarter: 2021Q4

REPORT INFORMATION
  Report Type: Spontaneous
  Country: US (occurrence: US)
  Receive Date: 20211220
  Receipt Date: 20211220
  Transmission Date: 20220303
  Serious: Yes (Death, Hospitalization)
  Sender: FDA-Public Use
  Company Number: US-BAYER-2021A265561

PATIENT
  Age: 31 Year
  Sex: Female

DRUGS (2)
  1. MIRENA [Suspect]
     Active Substance: LEVONORGESTREL
     Indication: Polymenorrhagia
     Dosage: 20?G/DAY
     Route: 015
     Dates: start: 20210520, end: 20211207
  2. MIRENA [Suspect]
     Active Substance: LEVONORGESTREL
     Indication: Iron deficiency anaemia

REACTIONS (2)
  - Pulmonary hypertension [Fatal]
  - Lung transplant rejection [Fatal]

NARRATIVE: CASE EVENT DATE: 20211207
